FAERS Safety Report 20701476 (Version 2)
Quarter: 2022Q2

REPORT INFORMATION
  Report Type: Report from Study
  Country: CO (occurrence: CO)
  Receive Date: 20220412
  Receipt Date: 20220429
  Transmission Date: 20220721
  Serious: Yes (Hospitalization, Other)
  Sender: FDA-Public Use
  Company Number: CO-AstraZeneca-2022A145198

PATIENT
  Age: 0 Year
  Sex: Male
  Weight: 7 kg

DRUGS (3)
  1. SYNAGIS [Suspect]
     Active Substance: PALIVIZUMAB
     Indication: Antiviral prophylaxis
     Dosage: 100 MG / 1 ML
     Route: 030
     Dates: start: 20210615
  2. ALBUTEROL [Concomitant]
     Active Substance: ALBUTEROL
  3. BECLOMETHASONE DIPROPIONATE [Concomitant]
     Active Substance: BECLOMETHASONE DIPROPIONATE

REACTIONS (5)
  - Bronchiolitis [Recovering/Resolving]
  - Pneumonitis [Unknown]
  - Cough [Recovering/Resolving]
  - Inappropriate schedule of product administration [Recovered/Resolved]
  - Product administration interrupted [Unknown]

NARRATIVE: CASE EVENT DATE: 20211101
